FAERS Safety Report 25642808 (Version 3)
Quarter: 2025Q3

REPORT INFORMATION
  Report Type: Report from Study
  Country: US (occurrence: US)
  Receive Date: 20250805
  Receipt Date: 20250924
  Transmission Date: 20251020
  Serious: No
  Sender: SUNOVION
  Company Number: US-SUMITOMO PHARMA SWITZERLAND GMBH-2025SPA009749

PATIENT
  Age: 73 Year
  Sex: Male

DRUGS (17)
  1. ORGOVYX [Suspect]
     Active Substance: RELUGOLIX
     Indication: Prostate cancer
     Route: 048
     Dates: start: 20250724, end: 20250724
  2. ORGOVYX [Suspect]
     Active Substance: RELUGOLIX
     Route: 048
  3. AMLODIPINE BESYLATE [Concomitant]
     Active Substance: AMLODIPINE BESYLATE
  4. ATORVASTATIN CALCIUM [Concomitant]
     Active Substance: ATORVASTATIN CALCIUM
  5. BENZONATATE [Concomitant]
     Active Substance: BENZONATATE
  6. BICALUTAMIDE [Concomitant]
     Active Substance: BICALUTAMIDE
  7. ELIQUIS [Concomitant]
     Active Substance: APIXABAN
  8. FINASTERIDE [Concomitant]
     Active Substance: FINASTERIDE
  9. GABAPENTIN [Concomitant]
     Active Substance: GABAPENTIN
  10. DIPHENHYDRAMINE HYDROCHLORIDE [Concomitant]
     Active Substance: DIPHENHYDRAMINE HYDROCHLORIDE
  11. LOSARTAN POTASSIUM [Concomitant]
     Active Substance: LOSARTAN POTASSIUM
  12. MELATONIN [Concomitant]
     Active Substance: MELATONIN
  13. METFORMIN HYDROCHLORIDE [Concomitant]
     Active Substance: METFORMIN HYDROCHLORIDE
  14. METOPROLOL SUCCINATE [Concomitant]
     Active Substance: METOPROLOL SUCCINATE
  15. TAGRISSO [Concomitant]
     Active Substance: OSIMERTINIB
  16. TAMSULOSIN HYDROCHLORIDE [Concomitant]
     Active Substance: TAMSULOSIN HYDROCHLORIDE
  17. VALACYCLOVIR HYDROCHLORIDE [Concomitant]
     Active Substance: VALACYCLOVIR HYDROCHLORIDE

REACTIONS (7)
  - Dry mouth [Unknown]
  - Abdominal discomfort [Unknown]
  - Night sweats [Unknown]
  - Fatigue [Unknown]
  - Constipation [Unknown]
  - Hot flush [Unknown]
  - Myalgia [Unknown]

NARRATIVE: CASE EVENT DATE: 20250727
